FAERS Safety Report 25700169 (Version 1)
Quarter: 2025Q3

REPORT INFORMATION
  Report Type: Spontaneous
  Country: US (occurrence: US)
  Receive Date: 20250819
  Receipt Date: 20250819
  Transmission Date: 20251020
  Serious: Yes (Other)
  Sender: SANOFI AVENTIS
  Company Number: US-DialogSolutions-SAAVPROD-PI809443-C1

PATIENT
  Age: 50 Year
  Sex: Female

DRUGS (8)
  1. ALEMTUZUMAB [Suspect]
     Active Substance: ALEMTUZUMAB
     Indication: End stage renal disease
  2. ALEMTUZUMAB [Suspect]
     Active Substance: ALEMTUZUMAB
     Indication: Focal segmental glomerulosclerosis
  3. PREDNISONE [Suspect]
     Active Substance: PREDNISONE
     Indication: End stage renal disease
  4. PREDNISONE [Suspect]
     Active Substance: PREDNISONE
     Indication: Focal segmental glomerulosclerosis
  5. TACROLIMUS [Suspect]
     Active Substance: TACROLIMUS
     Indication: End stage renal disease
  6. TACROLIMUS [Suspect]
     Active Substance: TACROLIMUS
     Indication: Focal segmental glomerulosclerosis
  7. MYCOPHENOLATE MOFETIL [Suspect]
     Active Substance: MYCOPHENOLATE MOFETIL
     Indication: End stage renal disease
  8. MYCOPHENOLATE MOFETIL [Suspect]
     Active Substance: MYCOPHENOLATE MOFETIL
     Indication: Focal segmental glomerulosclerosis

REACTIONS (11)
  - Tuberculosis [Recovered/Resolved]
  - Pyrexia [Recovered/Resolved]
  - Night sweats [Recovered/Resolved]
  - Pulmonary mass [Recovered/Resolved]
  - Abscess [Recovered/Resolved]
  - Graft complication [Unknown]
  - Renal mass [Recovering/Resolving]
  - Abdominal discomfort [Recovering/Resolving]
  - Ascites [Recovering/Resolving]
  - Lymphopenia [Unknown]
  - Off label use [Unknown]
